FAERS Safety Report 22042358 (Version 1)
Quarter: 2023Q1

REPORT INFORMATION
  Report Type: Report from Study
  Country: US (occurrence: US)
  Receive Date: 20230227
  Receipt Date: 20230227
  Transmission Date: 20230417
  Serious: No
  Sender: FDA-Public Use
  Company Number: US-002147023-NVSC2023US043993

PATIENT
  Sex: Male

DRUGS (1)
  1. COSENTYX [Suspect]
     Active Substance: SECUKINUMAB
     Indication: Product used for unknown indication
     Dosage: 300 MG (LIQUID)
     Route: 058

REACTIONS (6)
  - Psoriasis [Unknown]
  - Skin plaque [Unknown]
  - Rash erythematous [Unknown]
  - Melanocytic naevus [Unknown]
  - Macule [Unknown]
  - Papule [Unknown]
